FAERS Safety Report 8761701 (Version 1)
Quarter: 2012Q4

REPORT INFORMATION
  Report Type: Spontaneous
  Country: US (occurrence: None)
  Receive Date: 20120830
  Receipt Date: 20120830
  Transmission Date: 20130627
  Serious: No
  Sender: FDA-Public Use
  Company Number: None

PATIENT
  Age: 73 Year
  Sex: Female
  Weight: 65.77 kg

DRUGS (1)
  1. MOTRIN [Suspect]
     Indication: KNEE PAIN
     Dates: start: 20120829, end: 20120829

REACTIONS (3)
  - Urticaria [None]
  - Bronchial disorder [None]
  - Fear [None]
